FAERS Safety Report 19466883 (Version 1)
Quarter: 2021Q2

REPORT INFORMATION
  Report Type: Spontaneous
  Country: US (occurrence: US)
  Receive Date: 20210628
  Receipt Date: 20210628
  Transmission Date: 20210717
  Serious: No
  Sender: FDA-Public Use
  Company Number: US-TEVA-2021-US-1925941

PATIENT
  Sex: Female

DRUGS (1)
  1. PENICILLIN V [Suspect]
     Active Substance: PENICILLIN V
     Route: 065

REACTIONS (3)
  - Swelling [Unknown]
  - Urticaria [Unknown]
  - Drug hypersensitivity [Unknown]
